FAERS Safety Report 8232376-1 (Version None)
Quarter: 2012Q1

REPORT INFORMATION
  Report Type: 
  Country: None (occurrence: None)
  Receive Date: 20120323
  Receipt Date: 20120220
  Transmission Date: 20120608
  Serious: Yes (Other)
  Sender: FDA-Public Use
  Company Number: JP-GLAXOSMITHKLINE-B0783746A

PATIENT
  Sex: Male
  Weight: 38 kg

DRUGS (1)
  1. RELENZA [Suspect]
     Indication: INFLUENZA
     Dosage: 4IUAX PER DAY
     Route: 055
     Dates: start: 20120207, end: 20120211

REACTIONS (4)
  - BALANCE DISORDER [None]
  - SLEEP TALKING [None]
  - ABNORMAL BEHAVIOUR [None]
  - DEPRESSED LEVEL OF CONSCIOUSNESS [None]
